FAERS Safety Report 5042161-X (Version None)
Quarter: 2006Q2

REPORT INFORMATION
  Report Type: 
  Country: None (occurrence: None)
  Receive Date: 20060627
  Receipt Date: 20060612
  Transmission Date: 20061013
  Serious: Yes (Hospitalization, Disabling)
  Sender: FDA-Public Use
  Company Number: HQWYE194512JUN06

PATIENT
  Age: 34 Year
  Sex: Female
  Weight: 63.6 kg

DRUGS (4)
  1. ALESSE [Suspect]
     Indication: MENSTRUATION IRREGULAR
     Dosage: ORAL
     Route: 048
     Dates: start: 20030901, end: 20031101
  2. CYCLESSA [Suspect]
     Indication: HORMONE LEVEL ABNORMAL
     Dosage: ORAL
     Route: 048
     Dates: start: 20031201, end: 20040131
  3. ORTHO EVRA [Suspect]
     Indication: MENSTRUATION IRREGULAR
     Dosage: TRANSDERMAL
     Route: 062
     Dates: start: 20030801, end: 20030901
  4. FERROUS FUMARATE [Concomitant]

REACTIONS (11)
  - DISORIENTATION [None]
  - DIZZINESS [None]
  - DYSARTHRIA [None]
  - HAEMORRHAGE [None]
  - HYPOACUSIS [None]
  - LOSS OF CONSCIOUSNESS [None]
  - MENOMETRORRHAGIA [None]
  - MENORRHAGIA [None]
  - ROAD TRAFFIC ACCIDENT [None]
  - TRANSIENT ISCHAEMIC ATTACK [None]
  - UTERINE LEIOMYOMA [None]
